FAERS Safety Report 24419037 (Version 2)
Quarter: 2024Q4

REPORT INFORMATION
  Report Type: Spontaneous
  Country: PL (occurrence: PL)
  Receive Date: 20241009
  Receipt Date: 20241018
  Transmission Date: 20250115
  Serious: No
  Sender: ROCHE
  Company Number: None

PATIENT
  Age: 93 Year
  Sex: Male
  Weight: 75.0 kg

DRUGS (1)
  1. ALTEPLASE [Suspect]
     Active Substance: ALTEPLASE
     Indication: Pneumoconiosis
     Dosage: FREQUENCY TIME 24 HOURS
     Route: 042
     Dates: start: 20190310, end: 20190310

REACTIONS (1)
  - Haematoma [Recovering/Resolving]
